FAERS Safety Report 10936641 (Version 1)
Quarter: 2015Q1

REPORT INFORMATION
  Report Type: Spontaneous
  Country: US (occurrence: None)
  Receive Date: 20150212
  Receipt Date: 20150212
  Transmission Date: 20150721
  Serious: No
  Sender: FDA-Public Use
  Company Number: TPA2011A00066

PATIENT
  Age: 63 Year
  Sex: Male
  Weight: 104.33 kg

DRUGS (5)
  1. ASPIRIN (ACETYLSALICYLIC ACID) [Concomitant]
     Active Substance: ASPIRIN
  2. ASPIRIN (ACETYLSALICYLIC ACID) [Concomitant]
     Active Substance: ASPIRIN
  3. IBUPROFEN (IBUPROFEN) [Concomitant]
     Active Substance: IBUPROFEN
  4. IBUPROFEN (IBUPROFEN) [Concomitant]
     Active Substance: IBUPROFEN
  5. ULORIC [Suspect]
     Active Substance: FEBUXOSTAT
     Indication: BLOOD URIC ACID INCREASED
     Route: 048
     Dates: start: 20101222

REACTIONS (2)
  - Rash pruritic [None]
  - Paraesthesia [None]

NARRATIVE: CASE EVENT DATE: 20110105
